FAERS Safety Report 5494254-0 (Version None)
Quarter: 2007Q4

REPORT INFORMATION
  Report Type: 
  Country: None (occurrence: None)
  Receive Date: 20071024
  Receipt Date: 20071015
  Transmission Date: 20080405
  Serious: Yes (Hospitalization)
  Sender: FDA-Public Use
  Company Number: US-JNJFOC-20070902455

PATIENT
  Sex: Male
  Weight: 92.17 kg

DRUGS (4)
  1. REMICADE [Suspect]
     Indication: COLITIS ULCERATIVE
  2. ASOCOL [Concomitant]
  3. IMURAN [Concomitant]
     Indication: COLITIS ULCERATIVE
  4. STEROIDS [Concomitant]

REACTIONS (4)
  - LUNG NEOPLASM [None]
  - LUPUS-LIKE SYNDROME [None]
  - MALIGNANT MELANOMA [None]
  - PNEUMONIA [None]
